FAERS Safety Report 22140925 (Version 1)
Quarter: 2023Q1

REPORT INFORMATION
  Report Type: Spontaneous
  Country: US (occurrence: US)
  Receive Date: 20230327
  Receipt Date: 20230327
  Transmission Date: 20230418
  Serious: Yes (Other)
  Sender: FDA-Public Use
  Company Number: US-MYLANLABS-2023M1031340

PATIENT
  Age: 30 Year
  Sex: Male

DRUGS (5)
  1. CISPLATIN [Suspect]
     Active Substance: CISPLATIN
     Indication: Metastatic malignant melanoma
     Dosage: 20 MILLIGRAM/SQ. METER, CYCLE (ADMINISTERED ON DAYS 1-4 OF EVERY 21 DAYS CYCLE)
     Route: 042
  2. TEMOZOLOMIDE [Suspect]
     Active Substance: TEMOZOLOMIDE
     Indication: Metastatic malignant melanoma
     Dosage: 150 MILLIGRAM/SQ. METER, CYCLE (ADMINISTERED ON DAYS 1-5 OF EVERY 21 DAYS CYCLE)
     Route: 048
  3. VINBLASTINE [Suspect]
     Active Substance: VINBLASTINE
     Indication: Metastatic malignant melanoma
     Dosage: 1.6 MILLIGRAM/SQ. METER, CYCLE (ADMINISTERED ON DAYS 1-4 OF EVERY 21 DAYS CYCLE)
     Route: 042
  4. IPILIMUMAB [Concomitant]
     Active Substance: IPILIMUMAB
     Indication: Metastatic malignant melanoma
     Dosage: UNK
     Route: 065
  5. NIVOLUMAB\RELATLIMAB-RMBW [Concomitant]
     Active Substance: NIVOLUMAB\RELATLIMAB-RMBW
     Indication: Metastatic malignant melanoma
     Dosage: UNK
     Route: 042

REACTIONS (2)
  - Drug ineffective [Unknown]
  - Intestinal metastasis [Unknown]
